FAERS Safety Report 5214369-1 (Version None)
Quarter: 2007Q1

REPORT INFORMATION
  Report Type: 
  Country: None (occurrence: None)
  Receive Date: 20070116
  Receipt Date: 20070102
  Transmission Date: 20070707
  Serious: Yes (Death)
  Sender: FDA-Public Use
  Company Number: 151429USA

PATIENT
  Age: 68 Year
  Sex: Male

DRUGS (1)
  1. CLOZAPINE TABLETS, 12.5 MG, 50 MG [Suspect]
     Dates: end: 20061101

REACTIONS (1)
  - DEATH [None]
